FAERS Safety Report 25412623 (Version 1)
Quarter: 2025Q2

REPORT INFORMATION
  Report Type: Spontaneous
  Country: NL (occurrence: NL)
  Receive Date: 20250609
  Receipt Date: 20250609
  Transmission Date: 20250717
  Serious: Yes (Hospitalization)
  Sender: MEITHEAL PHARMACEUTICALS
  Company Number: NL-MEITHEAL-2025MPLIT00219

PATIENT
  Age: 72 Year
  Sex: Male

DRUGS (1)
  1. CARBOPLATIN [Suspect]
     Active Substance: CARBOPLATIN
     Indication: Lung neoplasm malignant
     Route: 065

REACTIONS (1)
  - Toxic epidermal necrolysis [Unknown]
